FAERS Safety Report 4347879-X (Version None)
Quarter: 2004Q2

REPORT INFORMATION
  Report Type: 
  Country: None (occurrence: None)
  Receive Date: 20040422
  Receipt Date: 20040329
  Transmission Date: 20050107
  Serious: Yes (Death)
  Sender: FDA-Public Use
  Company Number: KII-2003-0003643

PATIENT
  Age: 83 Year
  Sex: Male

DRUGS (1)
  1. OXYCONTIN [Suspect]
     Dosage: 160 MG, BID, ORAL
     Route: 048

REACTIONS (2)
  - CARDIAC FAILURE CONGESTIVE [None]
  - PNEUMONIA [None]
